FAERS Safety Report 19427792 (Version 1)
Quarter: 2021Q2

REPORT INFORMATION
  Report Type: Other
  Country: US (occurrence: US)
  Receive Date: 20210616
  Receipt Date: 20210616
  Transmission Date: 20210717
  Serious: No
  Sender: FDA-Public Use
  Company Number: US-ROCHE-2783057

PATIENT
  Age: 17 Year
  Sex: Male

DRUGS (4)
  1. AMOXICILLIN. [Concomitant]
     Active Substance: AMOXICILLIN
  2. REMDESIVIR. [Concomitant]
     Active Substance: REMDESIVIR
  3. TOCILIZUMAB. [Suspect]
     Active Substance: TOCILIZUMAB
     Route: 042
  4. TOCILIZUMAB. [Suspect]
     Active Substance: TOCILIZUMAB
     Indication: COVID-19 PNEUMONIA
     Route: 042

REACTIONS (3)
  - Product use in unapproved indication [Unknown]
  - No adverse event [Unknown]
  - Off label use [Unknown]
